FAERS Safety Report 22219759 (Version 4)
Quarter: 2023Q2

REPORT INFORMATION
  Report Type: Spontaneous
  Country: US (occurrence: US)
  Receive Date: 20230417
  Receipt Date: 20230629
  Transmission Date: 20230721
  Serious: No
  Sender: FDA-Public Use
  Company Number: US-PFIZER INC-202300147491

PATIENT
  Age: 16 Year
  Sex: Male
  Weight: 50.8 kg

DRUGS (1)
  1. GENOTROPIN [Suspect]
     Active Substance: SOMATROPIN
     Indication: Growth hormone deficiency
     Dosage: 2.6 MG ONCE A DAY BY INJECTION, 6 DAYS A WEEK
     Dates: start: 20230404

REACTIONS (4)
  - Poor quality device used [Unknown]
  - Drug dose omission by device [Unknown]
  - Device leakage [Unknown]
  - Mood altered [Unknown]

NARRATIVE: CASE EVENT DATE: 20230101
